FAERS Safety Report 25658086 (Version 1)
Quarter: 2025Q3

REPORT INFORMATION
  Report Type: Spontaneous
  Country: US (occurrence: US)
  Receive Date: 20250808
  Receipt Date: 20250808
  Transmission Date: 20251021
  Serious: No
  Sender: BAUSCH AND LOMB
  Company Number: US-BAUSCHBL-2025BNL013612

PATIENT
  Sex: Female

DRUGS (3)
  1. VYZULTA [Suspect]
     Active Substance: LATANOPROSTENE BUNOD
     Indication: Glaucoma
     Dosage: ONE DROP IN EACH EYE EVERY NIGHT AT BEDTIME
     Route: 047
     Dates: start: 20250725
  2. DORZOLAMIDE HYDROCHLORIDE [Suspect]
     Active Substance: DORZOLAMIDE HYDROCHLORIDE
     Indication: Product used for unknown indication
     Route: 065
  3. ARTIFICIAL TEARS [PROPYLENE GLYCOL] [Concomitant]
     Indication: Product used for unknown indication
     Route: 065

REACTIONS (3)
  - Adverse event [Unknown]
  - Eye pain [Unknown]
  - Product storage error [Unknown]
